FAERS Safety Report 6094902-0 (Version None)
Quarter: 2009Q1

REPORT INFORMATION
  Report Type: 
  Country: None (occurrence: None)
  Receive Date: 20090227
  Receipt Date: 20090225
  Transmission Date: 20090719
  Serious: Yes (Other)
  Sender: FDA-Public Use
  Company Number: DE-SP-2009-00715

PATIENT
  Age: 74 Year
  Sex: Male

DRUGS (2)
  1. IMMUCYST [Suspect]
     Indication: BLADDER CANCER
     Route: 065
     Dates: start: 20070608, end: 20070706
  2. SPASMOLYT [Concomitant]

REACTIONS (2)
  - ADVERSE EVENT [None]
  - LOCAL REACTION [None]
